FAERS Safety Report 4993119-8 (Version None)
Quarter: 2006Q1

REPORT INFORMATION
  Report Type: 
  Country: None (occurrence: None)
  Receive Date: 20060313
  Receipt Date: 20051101
  Transmission Date: 20060701
  Serious: No
  Sender: FDA-Public Use
  Company Number: 2005-BP-18684BP

PATIENT
  Sex: Male

DRUGS (10)
  1. SPIRIVA [Suspect]
     Indication: CHRONIC OBSTRUCTIVE PULMONARY DISEASE
     Dosage: 18 MCG (18 MCG), IH
     Route: 055
     Dates: start: 20051001
  2. COUMADIN [Concomitant]
  3. LOVENOX [Concomitant]
  4. FLOMAX [Concomitant]
  5. XANAX [Concomitant]
  6. PAXIL [Concomitant]
  7. PREVACID [Concomitant]
  8. MUCINEX (GUAIFNESIN) [Concomitant]
  9. ALBUTEROL [Concomitant]
  10. (POTASSIUM) (POTASSIUM) [Concomitant]

REACTIONS (1)
  - DRUG INEFFECTIVE [None]
